FAERS Safety Report 6653582-3 (Version None)
Quarter: 2010Q1

REPORT INFORMATION
  Report Type: 
  Country: None (occurrence: None)
  Receive Date: 20100326
  Receipt Date: 20100322
  Transmission Date: 20100710
  Serious: Yes (Death)
  Sender: FDA-Public Use
  Company Number: TR-ELI_LILLY_AND_COMPANY-TR201003005688

PATIENT
  Age: 70 Year
  Sex: Male

DRUGS (2)
  1. HUMULIN N [Suspect]
     Dosage: 6 U, EACH MORNING
     Route: 065
  2. HUMULIN N [Suspect]
     Dosage: 12 U, EACH EVENING
     Route: 065

REACTIONS (1)
  - CEREBROVASCULAR ACCIDENT [None]
